FAERS Safety Report 8018503-X (Version None)
Quarter: 2012Q1

REPORT INFORMATION
  Report Type: 
  Country: None (occurrence: None)
  Receive Date: 20120103
  Receipt Date: 20111228
  Transmission Date: 20120608
  Serious: Yes (Hospitalization, Other)
  Sender: FDA-Public Use
  Company Number: US-AMGEN-USASP2011058920

PATIENT
  Age: 74 Year
  Sex: Female
  Weight: 88.9 kg

DRUGS (10)
  1. ENBREL [Suspect]
     Indication: RHEUMATOID ARTHRITIS
     Dosage: 50 MG, QWK
     Route: 058
     Dates: start: 20060101
  2. FLEXERIL [Concomitant]
     Dosage: UNK
  3. TOPROL-XL [Concomitant]
     Dosage: 100 MG, QD
  4. LASIX [Concomitant]
     Dosage: 40 MG, QD
  5. VENTOLIN [Concomitant]
     Dosage: UNK
  6. SYNTHROID [Concomitant]
     Dosage: 112 MUG, QD
  7. PRIMIDONE [Concomitant]
     Dosage: 250 MG, BID
  8. ADVAIR DISKUS 100/50 [Concomitant]
     Dosage: UNK
  9. AZITHROMYCIN [Concomitant]
     Dosage: UNK
  10. ASPIRIN [Concomitant]
     Dosage: 81 MG, QD

REACTIONS (27)
  - PNEUMONIA [None]
  - BEDRIDDEN [None]
  - BACK PAIN [None]
  - ASTHENIA [None]
  - HYPERHIDROSIS [None]
  - PAPULE [None]
  - FATIGUE [None]
  - RALES [None]
  - LUNG DISORDER [None]
  - DIARRHOEA [None]
  - ASTHMA [None]
  - HYPERGLYCAEMIA [None]
  - CARDIAC PACEMAKER INSERTION [None]
  - CHEST PAIN [None]
  - ARTHRALGIA [None]
  - HYPERTENSION [None]
  - MALAISE [None]
  - CHILLS [None]
  - HEADACHE [None]
  - NAUSEA [None]
  - HYPOTHYROIDISM [None]
  - TREMOR [None]
  - OROPHARYNGEAL PAIN [None]
  - RHEUMATOID ARTHRITIS [None]
  - PYREXIA [None]
  - HYPERLIPIDAEMIA [None]
  - TRACHEOBRONCHITIS [None]
